FAERS Safety Report 6498214-2 (Version None)
Quarter: 2009Q4

REPORT INFORMATION
  Report Type: 
  Country: None (occurrence: None)
  Receive Date: 20091215
  Receipt Date: 20091211
  Transmission Date: 20100525
  Serious: Yes (Death)
  Sender: FDA-Public Use
  Company Number: A0834781A

PATIENT
  Age: 76 Year
  Sex: Male

DRUGS (4)
  1. ADVAIR DISKUS 100/50 [Suspect]
     Dosage: 1PUFF TWICE PER DAY
     Route: 055
     Dates: start: 20060101
  2. OXYCONTIN [Concomitant]
  3. OXYCODONE [Concomitant]
  4. OXYGEN [Concomitant]

REACTIONS (1)
  - DEATH [None]
